FAERS Safety Report 9540997 (Version 1)
Quarter: 2013Q3

REPORT INFORMATION
  Report Type: Spontaneous
  Country: US (occurrence: US)
  Receive Date: 20130922
  Receipt Date: 20130922
  Transmission Date: 20140515
  Serious: No
  Sender: FDA-Public Use
  Company Number: US-ALLERGAN-1213322US

PATIENT
  Age: 71 Year
  Sex: Female

DRUGS (6)
  1. SANCTURA XR [Suspect]
     Indication: HYPERTONIC BLADDER
     Dosage: 60 MG, UNK
     Route: 048
     Dates: start: 201203, end: 201207
  2. SERTRALINE [Concomitant]
     Indication: DEPRESSION
     Dosage: 100 MG, QD
     Route: 048
  3. LEVOTHYROXINE [Concomitant]
     Indication: HYPOTHYROIDISM
     Dosage: 100 ?G, QD
     Route: 048
  4. ATORVASTATIN CALCIUM [Concomitant]
     Indication: HYPERCHOLESTEROLAEMIA
     Dosage: 80 MG, QD
     Route: 048
  5. TRAZODONE [Concomitant]
     Indication: ANTIDEPRESSANT THERAPY
     Dosage: 100 MG, QD
     Route: 048
  6. CYCLOBENZAPRINE HYDROCHLORIDE [Concomitant]
     Indication: HEADACHE
     Dosage: 10 MG, UNK
     Route: 048

REACTIONS (1)
  - Constipation [Recovered/Resolved]
